FAERS Safety Report 24352716 (Version 1)
Quarter: 2024Q3

REPORT INFORMATION
  Report Type: Spontaneous
  Country: CN (occurrence: CN)
  Receive Date: 20240923
  Receipt Date: 20240923
  Transmission Date: 20241016
  Serious: Yes (Hospitalization)
  Sender: BAYER
  Company Number: CN-BAYER-2024A135059

PATIENT
  Age: 37 Year
  Sex: Female
  Weight: 53.5 kg

DRUGS (2)
  1. MIRENA [Suspect]
     Active Substance: LEVONORGESTREL
     Indication: Adenomyosis
     Dosage: 20?G/DAY
     Route: 015
     Dates: start: 20211228, end: 20240821
  2. MIRENA [Suspect]
     Active Substance: LEVONORGESTREL
     Indication: Heavy menstrual bleeding

REACTIONS (8)
  - Complication associated with device [Recovering/Resolving]
  - Embedded device [Recovered/Resolved]
  - Anorectal discomfort [None]
  - Vaginal haemorrhage [Recovered/Resolved]
  - Device dislocation [Recovered/Resolved]
  - Heavy menstrual bleeding [Recovered/Resolved]
  - Abdominal pain lower [Recovered/Resolved]
  - Respiratory rate increased [None]

NARRATIVE: CASE EVENT DATE: 20220509
